FAERS Safety Report 12699612 (Version 1)
Quarter: 2016Q3

REPORT INFORMATION
  Report Type: Spontaneous
  Country: DE (occurrence: DE)
  Receive Date: 20160830
  Receipt Date: 20160830
  Transmission Date: 20161109
  Serious: Yes (Death, Other)
  Sender: FDA-Public Use
  Company Number: DE-JNJFOC-20160715774

PATIENT
  Age: 72 Year
  Sex: Male
  Weight: 73 kg

DRUGS (8)
  1. BENAZEPRIL [Concomitant]
     Active Substance: BENAZEPRIL HYDROCHLORIDE
     Route: 065
  2. LERCANIDIPINE [Concomitant]
     Active Substance: LERCANIDIPINE
     Route: 065
  3. ACETYLSALICYLIC ACID [Concomitant]
     Active Substance: ASPIRIN
     Route: 065
     Dates: start: 1995, end: 20160509
  4. METOHEXAL SUCC [Concomitant]
     Active Substance: METOPROLOL SUCCINATE
     Route: 065
  5. XARELTO [Suspect]
     Active Substance: RIVAROXABAN
     Indication: CEREBROVASCULAR ACCIDENT PROPHYLAXIS
     Route: 048
     Dates: start: 20160512, end: 20160526
  6. ACETYLSALICYLIC ACID [Concomitant]
     Active Substance: ASPIRIN
     Route: 065
     Dates: start: 20160512
  7. XARELTO [Suspect]
     Active Substance: RIVAROXABAN
     Indication: ATRIAL FIBRILLATION
     Route: 048
     Dates: start: 20160512, end: 20160526
  8. PLAVIX [Concomitant]
     Active Substance: CLOPIDOGREL BISULFATE
     Route: 065

REACTIONS (11)
  - Duodenal ulcer perforation [Fatal]
  - Dizziness [Unknown]
  - Decreased appetite [Unknown]
  - Asthenia [Unknown]
  - Peritonitis [Unknown]
  - Acute kidney injury [Unknown]
  - Hepatic failure [Unknown]
  - Intestinal infarction [Unknown]
  - Duodenal ulcer haemorrhage [Fatal]
  - Cholecystitis acute [Unknown]
  - Volvulus of small bowel [Unknown]

NARRATIVE: CASE EVENT DATE: 20160525
